FAERS Safety Report 5716492-1 (Version None)
Quarter: 2008Q2

REPORT INFORMATION
  Report Type: 
  Country: None (occurrence: None)
  Receive Date: 20080424
  Receipt Date: 20080417
  Transmission Date: 20081010
  Serious: Yes (Hospitalization, Other)
  Sender: FDA-Public Use
  Company Number: HQWYE176814MAY07

PATIENT
  Sex: Female

DRUGS (5)
  1. PREMPRO [Suspect]
  2. PROMETRIUM [Suspect]
  3. PROVERA [Suspect]
  4. PREMARIN [Suspect]
  5. ESTRATAB [Suspect]

REACTIONS (1)
  - BREAST CANCER METASTATIC [None]
